FAERS Safety Report 17788517 (Version 2)
Quarter: 2020Q3

REPORT INFORMATION
  Report Type: Report from Study
  Country: TH (occurrence: TH)
  Receive Date: 20200514
  Receipt Date: 20200812
  Transmission Date: 20201102
  Serious: Yes (Life-Threatening)
  Sender: FDA-Public Use
  Company Number: TH-JNJFOC-20190702449

PATIENT
  Age: 14 Year
  Sex: Female
  Weight: 39.3 kg

DRUGS (6)
  1. DOLUTEGRAVIR [Suspect]
     Active Substance: DOLUTEGRAVIR
     Indication: HIV INFECTION
     Route: 065
     Dates: start: 20190522, end: 20190620
  2. RITONAVIR. [Suspect]
     Active Substance: RITONAVIR
     Indication: HIV INFECTION
     Route: 065
     Dates: start: 20190522, end: 20190620
  3. ZIDOVUDINE. [Concomitant]
     Active Substance: ZIDOVUDINE
     Dates: start: 20110507
  4. DARUNAVIR [Suspect]
     Active Substance: DARUNAVIR
     Indication: HIV INFECTION
     Route: 048
     Dates: start: 20190522, end: 20190620
  5. LAMIVUDINE. [Concomitant]
     Active Substance: LAMIVUDINE
     Dates: start: 20110507
  6. NEVIRAPINE. [Concomitant]
     Active Substance: NEVIRAPINE
     Dates: start: 20110507

REACTIONS (1)
  - Hepatitis acute [Recovered/Resolved]

NARRATIVE: CASE EVENT DATE: 20190619
